FAERS Safety Report 4778718-0 (Version None)
Quarter: 2005Q3

REPORT INFORMATION
  Report Type: 
  Country: None (occurrence: None)
  Receive Date: 20050926
  Receipt Date: 20050915
  Transmission Date: 20060218
  Serious: Yes (Hospitalization)
  Sender: FDA-Public Use
  Company Number: US-ROCHE-418071

PATIENT
  Age: 54 Year
  Sex: Male
  Weight: 65.8 kg

DRUGS (5)
  1. FUZEON [Suspect]
     Route: 058
     Dates: start: 20010615, end: 20050815
  2. FUZEON [Suspect]
     Route: 058
     Dates: start: 20050815
  3. KALETRA [Concomitant]
     Route: 048
     Dates: start: 20010615
  4. FAMVIR [Concomitant]
     Route: 048
     Dates: start: 20010615
  5. ZITHROMAX [Concomitant]
     Route: 048
     Dates: start: 20010615

REACTIONS (5)
  - DEHYDRATION [None]
  - DIARRHOEA [None]
  - RHINORRHOEA [None]
  - SINUSITIS [None]
  - WEIGHT DECREASED [None]
